FAERS Safety Report 8072436-1 (Version None)
Quarter: 2012Q1

REPORT INFORMATION
  Report Type: 
  Country: None (occurrence: None)
  Receive Date: 20120126
  Receipt Date: 20120124
  Transmission Date: 20120608
  Serious: No
  Sender: FDA-Public Use
  Company Number: US-BAYER-2012-007964

PATIENT
  Age: 55 Year
  Sex: Female

DRUGS (1)
  1. MIRENA [Suspect]
     Dosage: 20 MCG/24HR, CONT
     Dates: start: 20100901

REACTIONS (3)
  - LIBIDO DECREASED [None]
  - AMENORRHOEA [None]
  - BLOOD FOLLICLE STIMULATING HORMONE INCREASED [None]
